FAERS Safety Report 4655859-X (Version None)
Quarter: 2005Q2

REPORT INFORMATION
  Report Type: 
  Country: None (occurrence: None)
  Receive Date: 20050506
  Receipt Date: 20050506
  Transmission Date: 20051028
  Serious: Yes (Hospitalization)
  Sender: FDA-Public Use
  Company Number: None

PATIENT
  Age: 58 Year
  Sex: Female
  Weight: 106.5953 kg

DRUGS (2)
  1. GEMCITABINE [Suspect]
     Indication: OVARIAN CANCER
     Dosage: 1000 MG/M2 IV D1, 8
     Route: 042
     Dates: start: 20050301, end: 20050308
  2. CARBOPLATIN [Suspect]
     Indication: OVARIAN CANCER
     Dosage: AUC 5 IV D1
     Route: 042
     Dates: start: 20050322

REACTIONS (1)
  - PULMONARY EMBOLISM [None]
